FAERS Safety Report 8607691-X (Version None)
Quarter: 2012Q3

REPORT INFORMATION
  Report Type: 
  Country: None (occurrence: None)
  Receive Date: 20120821
  Receipt Date: 20120816
  Transmission Date: 20120928
  Serious: Yes (Other)
  Sender: FDA-Public Use
  Company Number: US-PFIZER INC-2012200983

PATIENT

DRUGS (1)
  1. XANAX [Suspect]

REACTIONS (4)
  - SYSTEMIC LUPUS ERYTHEMATOSUS [None]
  - MALAISE [None]
  - EPILEPSY [None]
  - AMNESIA [None]
